FAERS Safety Report 24641687 (Version 1)
Quarter: 2024Q4

REPORT INFORMATION
  Report Type: Other
  Country: US (occurrence: US)
  Receive Date: 20241120
  Receipt Date: 20241120
  Transmission Date: 20250115
  Serious: No
  Sender: YUNG SHIN PHARMACEUTICAL INDUSTRIAL
  Company Number: US-Yung Shin Pharmaceutical Ind.  Co., Ltd.-2165483

PATIENT
  Sex: Female

DRUGS (1)
  1. CEFACLOR [Suspect]
     Active Substance: CEFACLOR

REACTIONS (1)
  - Hypersensitivity [Unknown]
